FAERS Safety Report 4901191-6 (Version None)
Quarter: 2006Q1

REPORT INFORMATION
  Report Type: 
  Country: None (occurrence: None)
  Receive Date: 20060202
  Receipt Date: 20060125
  Transmission Date: 20060701
  Serious: Yes (Other)
  Sender: FDA-Public Use
  Company Number: 2006012978

PATIENT
  Age: 8 Year
  Sex: Male

DRUGS (2)
  1. ZOLOFT [Suspect]
     Indication: ILL-DEFINED DISORDER
  2. TRILEPTAL [Concomitant]

REACTIONS (2)
  - DRUG SCREEN POSITIVE [None]
  - EPILEPSY [None]
